FAERS Safety Report 6988932-1 (Version None)
Quarter: 2010Q3

REPORT INFORMATION
  Report Type: 
  Country: None (occurrence: None)
  Receive Date: 20100916
  Receipt Date: 20090723
  Transmission Date: 20110219
  Serious: Yes (Other)
  Sender: FDA-Public Use
  Company Number: GB-PFIZER INC-2009206830

PATIENT
  Sex: Female
  Weight: 46.8 kg

DRUGS (1)
  1. LYRICA [Suspect]
     Dosage: 100 MG, 1X/DAY
     Route: 048
     Dates: start: 20090212

REACTIONS (2)
  - ATRIAL FIBRILLATION [None]
  - MALAISE [None]
